FAERS Safety Report 21036593 (Version 7)
Quarter: 2023Q4

REPORT INFORMATION
  Report Type: Spontaneous
  Country: US (occurrence: US)
  Receive Date: 20220702
  Receipt Date: 20231227
  Transmission Date: 20240110
  Serious: No
  Sender: FDA-Public Use
  Company Number: US-BRISTOL-MYERS SQUIBB COMPANY-2022-067072

PATIENT
  Age: 75 Year
  Sex: Female

DRUGS (1)
  1. POMALYST [Suspect]
     Active Substance: POMALIDOMIDE
     Indication: Plasma cell myeloma
     Route: 048
     Dates: start: 20210930

REACTIONS (5)
  - Product dose omission issue [Unknown]
  - Secretion discharge [Unknown]
  - Infection [Unknown]
  - Product prescribing issue [Unknown]
  - Anger [Unknown]

NARRATIVE: CASE EVENT DATE: 20220627
